FAERS Safety Report 15076681 (Version 2)
Quarter: 2018Q3

REPORT INFORMATION
  Report Type: Spontaneous
  Country: JP (occurrence: JP)
  Receive Date: 20180627
  Receipt Date: 20180907
  Transmission Date: 20181010
  Serious: Yes (Other)
  Sender: FDA-Public Use
  Company Number: JP-PFIZER INC-2018253917

PATIENT
  Age: 75 Year
  Sex: Male
  Weight: 58.5 kg

DRUGS (4)
  1. VFEND [Interacting]
     Active Substance: VORICONAZOLE
     Dosage: 200 MG, 2X/DAY
     Dates: end: 20180621
  2. GEMCITABINE HYDROCHLORIDE. [Interacting]
     Active Substance: GEMCITABINE HYDROCHLORIDE
     Indication: LUNG NEOPLASM MALIGNANT
     Dosage: 1330 MG, DAILY
     Dates: start: 20180614
  3. AMPICILLIN AND SULBACTAM [Concomitant]
     Active Substance: AMPICILLIN SODIUM\SULBACTAM SODIUM
     Dosage: UNK
     Dates: start: 20180618
  4. VFEND [Suspect]
     Active Substance: VORICONAZOLE
     Indication: BRONCHOPULMONARY ASPERGILLOSIS
     Dosage: 350 MG, 2X/DAY
     Dates: start: 20180618

REACTIONS (2)
  - Altered state of consciousness [Recovered/Resolved]
  - Drug interaction [Unknown]

NARRATIVE: CASE EVENT DATE: 20180620
